FAERS Safety Report 22264461 (Version 1)
Quarter: 2023Q2

REPORT INFORMATION
  Report Type: Spontaneous
  Country: AU (occurrence: AU)
  Receive Date: 20230428
  Receipt Date: 20230428
  Transmission Date: 20230722
  Serious: Yes (Hospitalization)
  Sender: FDA-Public Use
  Company Number: AU-INDIVIOR EUROPE LIMITED-INDV-138232-2023

PATIENT

DRUGS (1)
  1. BUPRENORPHINE [Suspect]
     Active Substance: BUPRENORPHINE
     Indication: Product used for unknown indication
     Dosage: UNK
     Route: 065

REACTIONS (6)
  - Sleep disorder [Unknown]
  - Urinary tract disorder [Unknown]
  - Vision blurred [Unknown]
  - Dyspnoea [Unknown]
  - Irritability [Unknown]
  - Rash [Unknown]

NARRATIVE: CASE EVENT DATE: 20220801
